FAERS Safety Report 20319742 (Version 1)
Quarter: 2022Q1

REPORT INFORMATION
  Report Type: Spontaneous
  Country: NO (occurrence: NO)
  Receive Date: 20220111
  Receipt Date: 20220111
  Transmission Date: 20220423
  Serious: Yes (Hospitalization, Other)
  Sender: FDA-Public Use
  Company Number: NO-SUN PHARMACEUTICAL INDUSTRIES LTD-2019R1-227906

PATIENT
  Age: 54 Year
  Sex: Male

DRUGS (2)
  1. BOSENTAN [Suspect]
     Active Substance: BOSENTAN
     Indication: Scleroderma associated digital ulcer
     Route: 048
  2. BOSENTAN [Suspect]
     Active Substance: BOSENTAN
     Indication: Raynaud^s phenomenon

REACTIONS (21)
  - Capillary leak syndrome [Recovered/Resolved]
  - Hyperkalaemia [Recovered/Resolved]
  - Hyponatraemia [Recovered/Resolved]
  - Leukocytosis [Recovered/Resolved]
  - Pericardial effusion [Recovered/Resolved]
  - Hypotension [Recovered/Resolved]
  - Ventricular hyperkinesia [Recovered/Resolved]
  - Metabolic acidosis [Recovered/Resolved]
  - Orthopnoea [Recovered/Resolved]
  - Haemoconcentration [Recovered/Resolved]
  - Pleural effusion [Recovered/Resolved]
  - Weight increased [Recovered/Resolved]
  - Dyspnoea [Recovered/Resolved]
  - Hypoalbuminaemia [Recovered/Resolved]
  - Hypovolaemia [Recovered/Resolved]
  - Acute kidney injury [Recovered/Resolved]
  - Oedema peripheral [Recovered/Resolved]
  - Tachycardia [Recovered/Resolved]
  - White blood cell count increased [Recovered/Resolved]
  - Aspiration pleural cavity [Recovered/Resolved]
  - Disease progression [Unknown]
